FAERS Safety Report 4888691-2 (Version None)
Quarter: 2005Q4

REPORT INFORMATION
  Report Type: 
  Country: None (occurrence: None)
  Receive Date: 20051215
  Receipt Date: 20050523
  Transmission Date: 20060501
  Serious: Yes (Hospitalization, Other)
  Sender: FDA-Public Use
  Company Number: 2005078525

PATIENT
  Age: 80 Year
  Sex: Female
  Weight: 68.0396 kg

DRUGS (10)
  1. BEXTRA [Suspect]
     Indication: ARTHRITIS
     Dosage: 10 MG (10 MG, 1 IN 1 D), ORAL
     Route: 048
     Dates: start: 20030601
  2. AVANDIA [Concomitant]
  3. CELEBREX [Concomitant]
  4. FOSAMAX [Concomitant]
  5. MECLIZINE [Concomitant]
  6. PLAVIX [Concomitant]
  7. ALTACE [Concomitant]
  8. THEOPHYLLINE [Concomitant]
  9. ADVAIR DISKUS 100/50 [Concomitant]
  10. ZOCOR [Concomitant]

REACTIONS (1)
  - MYOCARDIAL INFARCTION [None]
